FAERS Safety Report 6669615-4 (Version None)
Quarter: 2010Q2

REPORT INFORMATION
  Report Type: 
  Country: None (occurrence: None)
  Receive Date: 20100406
  Receipt Date: 20100222
  Transmission Date: 20101027
  Serious: Yes (Other)
  Sender: FDA-Public Use
  Company Number: IN-MYLANLABS-2010S1002858

PATIENT
  Age: 32 Year
  Sex: Male

DRUGS (5)
  1. VALPROIC ACID [Suspect]
     Indication: CONVULSION
     Route: 065
     Dates: start: 20060501
  2. MYCOPHENOLATE MOFETIL [Interacting]
     Indication: RENAL TRANSPLANT
     Dosage: 2000 MG/DAY
     Route: 065
  3. MYCOPHENOLATE SODIUM [Interacting]
     Indication: RENAL TRANSPLANT
     Dosage: 1440 MG/DAY
     Route: 065
  4. PREDNISOLONE [Concomitant]
     Indication: RENAL TRANSPLANT
     Route: 065
  5. TACROLIMUS [Concomitant]
     Indication: RENAL TRANSPLANT
     Route: 065

REACTIONS (3)
  - DRUG INTERACTION [None]
  - IMMUNOSUPPRESSANT DRUG LEVEL DECREASED [None]
  - TRANSPLANT REJECTION [None]
